FAERS Safety Report 18739194 (Version 1)
Quarter: 2021Q1

REPORT INFORMATION
  Report Type: Spontaneous
  Country: US (occurrence: US)
  Receive Date: 20210114
  Receipt Date: 20210114
  Transmission Date: 20210419
  Serious: No
  Sender: FDA-Public Use
  Company Number: US-ALLERGAN-2048198US

PATIENT
  Age: 63 Year
  Sex: Female

DRUGS (18)
  1. EMGALITY [Suspect]
     Active Substance: GALCANEZUMAB-GNLM
     Indication: PRODUCT USED FOR UNKNOWN INDICATION
  2. MULTI FOR HER 50+ [Concomitant]
  3. UBIQUINOL [Concomitant]
     Active Substance: UBIQUINOL
  4. UBRELVY [Suspect]
     Active Substance: UBROGEPANT
     Indication: MIGRAINE
     Route: 048
  5. SYNTHROID [Concomitant]
     Active Substance: LEVOTHYROXINE SODIUM
  6. SINGULAIR [Concomitant]
     Active Substance: MONTELUKAST SODIUM
  7. PROPRANOLOL [Concomitant]
     Active Substance: PROPRANOLOL HYDROCHLORIDE
  8. IBUPROFEN. [Concomitant]
     Active Substance: IBUPROFEN
  9. MAGNESIUM [Concomitant]
     Active Substance: MAGNESIUM
  10. CRESTOR [Concomitant]
     Active Substance: ROSUVASTATIN CALCIUM
  11. NEXIUM [Concomitant]
     Active Substance: ESOMEPRAZOLE MAGNESIUM
  12. FOLAST [Concomitant]
  13. VITAMIN D3 [Concomitant]
     Active Substance: CHOLECALCIFEROL
  14. EPIPEN [Concomitant]
     Active Substance: EPINEPHRINE
  15. ZOFRAN [Concomitant]
     Active Substance: ONDANSETRON HYDROCHLORIDE
  16. ACYCLOVIR                          /00587301/ [Concomitant]
     Active Substance: ACYCLOVIR
  17. VENLAFAXINE                        /01233802/ [Concomitant]
     Active Substance: VENLAFAXINE HYDROCHLORIDE
  18. ACETAMINOPHEN. [Concomitant]
     Active Substance: ACETAMINOPHEN

REACTIONS (1)
  - Nausea [Not Recovered/Not Resolved]
